FAERS Safety Report 8916041 (Version 2)
Quarter: 2013Q3

REPORT INFORMATION
  Report Type: Spontaneous
  Country: FR (occurrence: FR)
  Receive Date: 20121119
  Receipt Date: 20130822
  Transmission Date: 20140515
  Serious: Yes (Other)
  Sender: FDA-Public Use
  Company Number: FR-JNJFOC-20121106298

PATIENT
  Sex: Female

DRUGS (3)
  1. REMICADE [Suspect]
     Indication: CROHN^S DISEASE
     Route: 042
     Dates: start: 200908, end: 20120308
  2. TENORMIN [Concomitant]
     Indication: HYPERTENSION
     Dosage: TAKEN FOR 7 YEARS
     Route: 065
     Dates: end: 201206
  3. TENORMIN [Concomitant]
     Indication: HYPERTENSION
     Route: 065

REACTIONS (2)
  - Asthma [Recovering/Resolving]
  - Drug effect decreased [Unknown]
